FAERS Safety Report 10008017 (Version 1)
Quarter: 2014Q1

REPORT INFORMATION
  Report Type: Report from Study
  Country: CA (occurrence: CA)
  Receive Date: 20140313
  Receipt Date: 20140313
  Transmission Date: 20141002
  Serious: Yes (Other)
  Sender: FDA-Public Use
  Company Number: CA-JNJFOC-20140304733

PATIENT
  Age: 44 Year
  Sex: Female
  Weight: 66 kg

DRUGS (1)
  1. REMICADE [Suspect]
     Indication: CROHN^S DISEASE
     Route: 042
     Dates: start: 201304

REACTIONS (2)
  - Depression [Unknown]
  - Oral candidiasis [Recovering/Resolving]
